FAERS Safety Report 18157723 (Version 1)
Quarter: 2020Q3

REPORT INFORMATION
  Report Type: Spontaneous
  Country: IN (occurrence: IN)
  Receive Date: 20200817
  Receipt Date: 20200817
  Transmission Date: 20201103
  Serious: Yes (Other)
  Sender: FDA-Public Use
  Company Number: IN-NOVOPROD-746174

PATIENT
  Age: 16 Year
  Sex: Female

DRUGS (1)
  1. MIXTARD 30 [Suspect]
     Active Substance: INSULIN HUMAN
     Indication: TYPE 1 DIABETES MELLITUS
     Dosage: 50 IU, QD (30?0?20)
     Route: 065

REACTIONS (4)
  - Incorrect dose administered [Unknown]
  - Diabetic ketoacidosis [Unknown]
  - Intentional product misuse [Unknown]
  - Wrong technique in product usage process [Unknown]
